FAERS Safety Report 21479570 (Version 1)
Quarter: 2022Q4

REPORT INFORMATION
  Report Type: Spontaneous
  Country: US (occurrence: US)
  Receive Date: 20221019
  Receipt Date: 20221019
  Transmission Date: 20230113
  Serious: No
  Sender: FDA-Public Use
  Company Number: US-AMGEN-USASP2022177379

PATIENT
  Age: 65 Year
  Sex: Female

DRUGS (1)
  1. NEUPOGEN [Suspect]
     Active Substance: FILGRASTIM
     Indication: Neutropenia
     Dosage: 150 MICROGRAM, 2 TIMES/WK
     Route: 065

REACTIONS (4)
  - Product dose omission issue [Unknown]
  - Product storage error [Unknown]
  - Circumstance or information capable of leading to medication error [Unknown]
  - Off label use [Unknown]

NARRATIVE: CASE EVENT DATE: 20220901
